FAERS Safety Report 12785072 (Version 2)
Quarter: 2017Q1

REPORT INFORMATION
  Report Type: Spontaneous
  Country: CH (occurrence: CH)
  Receive Date: 20160927
  Receipt Date: 20170329
  Transmission Date: 20170428
  Serious: Yes (Other)
  Sender: FDA-Public Use
  Company Number: CH-PFIZER INC-2016034622

PATIENT
  Age: 48 Year
  Sex: Male

DRUGS (2)
  1. CRIZOTINIB [Suspect]
     Active Substance: CRIZOTINIB
     Dosage: 250 MG 2X/DAY, 1-0-1
     Dates: start: 20140106, end: 201504
  2. CRIZOTINIB [Suspect]
     Active Substance: CRIZOTINIB
     Indication: LUNG ADENOCARCINOMA
     Dosage: 250 MG, 2X/DAY
     Route: 048
     Dates: start: 20131128

REACTIONS (11)
  - Pulmonary embolism [Unknown]
  - Visual impairment [Unknown]
  - Thrombocytopenia [Unknown]
  - Vomiting psychogenic [Unknown]
  - Psychiatric decompensation [Recovering/Resolving]
  - Nausea [Unknown]
  - Lung adenocarcinoma [Unknown]
  - Inappropriate schedule of drug administration [Unknown]
  - Diplopia [Unknown]
  - Disease progression [Unknown]
  - Gait disturbance [Unknown]
